FAERS Safety Report 11933527 (Version 1)
Quarter: 2016Q1

REPORT INFORMATION
  Report Type: Spontaneous
  Country: FR (occurrence: FR)
  Receive Date: 20160121
  Receipt Date: 20160121
  Transmission Date: 20160526
  Serious: Yes (Life-Threatening, Hospitalization, Other)
  Sender: FDA-Public Use
  Company Number: FR-BRISTOL-MYERS SQUIBB COMPANY-BMS-2016-000822

PATIENT
  Sex: Male

DRUGS (2)
  1. COUMADINE [Suspect]
     Active Substance: WARFARIN SODIUM
     Indication: PRODUCT USED FOR UNKNOWN INDICATION
     Dosage: UNK
     Route: 048
     Dates: end: 20151122
  2. CALCIPARINE [Suspect]
     Active Substance: HEPARIN CALCIUM
     Indication: PRODUCT USED FOR UNKNOWN INDICATION
     Dosage: 1 DF, UNK
     Route: 058
     Dates: start: 20151113

REACTIONS (7)
  - Shock haemorrhagic [Recovered/Resolved]
  - Haemorrhoidal haemorrhage [Recovered/Resolved]
  - Polyp [Unknown]
  - Anaemia [Recovering/Resolving]
  - Packed red blood cell transfusion [Unknown]
  - Gastric ulcer [Unknown]
  - Polypectomy [Unknown]
